FAERS Safety Report 4677321-0 (Version None)
Quarter: 2005Q2

REPORT INFORMATION
  Report Type: 
  Country: None (occurrence: None)
  Receive Date: 20050531
  Receipt Date: 20050525
  Transmission Date: 20051028
  Serious: Yes (Other)
  Sender: FDA-Public Use
  Company Number: PHEH2005US05919

PATIENT
  Age: 70 Year
  Sex: Female

DRUGS (8)
  1. ZELNORM [Suspect]
     Indication: IRRITABLE BOWEL SYNDROME
     Dosage: 6 MG, QD
     Route: 048
     Dates: start: 20040501
  2. GLUCOPHAGE [Concomitant]
  3. GLUCOTROL [Concomitant]
  4. TOPROL-XL [Concomitant]
  5. PRAVACHOL [Concomitant]
  6. K-DUR 10 [Concomitant]
  7. CARDIZEM [Concomitant]
  8. ACETYLSALICYLIC ACID [Concomitant]

REACTIONS (3)
  - DIARRHOEA [None]
  - HAEMATOCHEZIA [None]
  - NAUSEA [None]
